FAERS Safety Report 15172522 (Version 1)
Quarter: 2018Q3

REPORT INFORMATION
  Report Type: Spontaneous
  Country: US (occurrence: US)
  Receive Date: 20180622
  Receipt Date: 20180622
  Transmission Date: 20181010
  Serious: Yes (Other)
  Sender: FDA-Public Use
  Company Number: None

PATIENT
  Age: 28 Year
  Sex: Male
  Weight: 121.56 kg

DRUGS (4)
  1. TOPIRAMATE. [Suspect]
     Active Substance: TOPIRAMATE
     Indication: SEIZURE
     Dosage: 1 TAB AM, 2 TABS PM
     Route: 048
     Dates: start: 20081229, end: 20120113
  2. TOPIRAMATE. [Suspect]
     Active Substance: TOPIRAMATE
     Indication: LENNOX-GASTAUT SYNDROME
     Dosage: 1 TAB AM, 2 TABS PM
     Route: 048
     Dates: start: 20081229, end: 20120113
  3. TOPIRAMATE. [Suspect]
     Active Substance: TOPIRAMATE
     Indication: LENNOX-GASTAUT SYNDROME
     Dosage: 2 TABS AM ORAL
     Route: 048
     Dates: start: 20081229, end: 20120113
  4. TOPIRAMATE. [Suspect]
     Active Substance: TOPIRAMATE
     Indication: SEIZURE
     Dosage: 2 TABS AM ORAL
     Route: 048
     Dates: start: 20081229, end: 20120113

REACTIONS (1)
  - Somnolence [None]

NARRATIVE: CASE EVENT DATE: 20120113
